FAERS Safety Report 24373280 (Version 1)
Quarter: 2024Q3

REPORT INFORMATION
  Report Type: Spontaneous
  Country: US (occurrence: None)
  Receive Date: 20240925
  Receipt Date: 20240925
  Transmission Date: 20241016
  Serious: Yes (unspecified)
  Sender: Public
  Company Number: None

PATIENT
  Age: 70 Year
  Sex: Male
  Weight: 72.6 kg

DRUGS (2)
  1. ASPIRIN [Suspect]
     Active Substance: ASPIRIN
  2. PRASUGREL [Suspect]
     Active Substance: PRASUGREL

REACTIONS (4)
  - Acute myocardial infarction [None]
  - Vascular stent stenosis [None]
  - Thrombolysis [None]
  - Myocardial infarction [None]

NARRATIVE: CASE EVENT DATE: 20240805
